FAERS Safety Report 9401923 (Version 6)
Quarter: 2017Q3

REPORT INFORMATION
  Report Type: Spontaneous
  Country: US (occurrence: US)
  Receive Date: 20130716
  Receipt Date: 20170918
  Transmission Date: 20171128
  Serious: Yes (Other)
  Sender: FDA-Public Use
  Company Number: US-PFIZER INC-2013204116

PATIENT
  Age: 71 Year
  Sex: Male
  Weight: 83 kg

DRUGS (10)
  1. SOMATULINE DEPOT [Concomitant]
     Active Substance: LANREOTIDE ACETATE
     Indication: ACROMEGALY
     Dosage: 120 MG, EVERY 28 DAYS
     Route: 058
     Dates: start: 20081113
  2. MULTIVITAMINS [Concomitant]
     Active Substance: VITAMINS
     Dosage: UNK
  3. PLENDIL [Concomitant]
     Active Substance: FELODIPINE
     Dosage: 10 MG, 1X/DAY
     Dates: end: 20140520
  4. FISH OIL [Concomitant]
     Active Substance: FISH OIL
     Dosage: 340-100
  5. MELOXICAM. [Concomitant]
     Active Substance: MELOXICAM
     Dosage: 7.5 MG, 1X/DAY
  6. VYTORIN [Concomitant]
     Active Substance: EZETIMIBE\SIMVASTATIN
     Dosage: 10/40 MG ONCE DAILY
  7. METFORMIN [Concomitant]
     Active Substance: METFORMIN HYDROCHLORIDE
     Dosage: 500 MG, 1X/DAY
  8. LOPRESSOR [Concomitant]
     Active Substance: METOPROLOL TARTRATE
     Dosage: 25 MG, 2X/DAY
  9. SOMAVERT [Suspect]
     Active Substance: PEGVISOMANT
     Indication: ACROMEGALY
     Dosage: 25 MG,THREE TIMES/WEEK
     Route: 058
     Dates: start: 20091012
  10. POTASSIUM CITRATE. [Concomitant]
     Active Substance: POTASSIUM CITRATE
     Dosage: 10 MEQ, UNK

REACTIONS (4)
  - Hypertension [Unknown]
  - Pruritus [Unknown]
  - Headache [Recovering/Resolving]
  - Condition aggravated [Unknown]
